FAERS Safety Report 5769698-X (Version None)
Quarter: 2008Q2

REPORT INFORMATION
  Report Type: 
  Country: None (occurrence: None)
  Receive Date: 20080612
  Receipt Date: 20080404
  Transmission Date: 20081010
  Serious: No
  Sender: FDA-Public Use
  Company Number: US-ABBOTT-08P-163-0445889-00

PATIENT
  Sex: Female

DRUGS (1)
  1. HUMIRA [Suspect]
     Indication: ANKYLOSING SPONDYLITIS
     Route: 058
     Dates: start: 20080101

REACTIONS (7)
  - ARTHRALGIA [None]
  - JOINT SWELLING [None]
  - LIMB DISCOMFORT [None]
  - MUSCLE SPASMS [None]
  - MUSCULAR WEAKNESS [None]
  - NIGHT SWEATS [None]
  - PAIN IN EXTREMITY [None]
